FAERS Safety Report 8465044-1 (Version None)
Quarter: 2012Q2

REPORT INFORMATION
  Report Type: 
  Country: None (occurrence: None)
  Receive Date: 20120626
  Receipt Date: 20120612
  Transmission Date: 20120825
  Serious: Yes (Other)
  Sender: FDA-Public Use
  Company Number: BR-PFIZER INC-2012150868

PATIENT
  Age: 65 Year
  Sex: Female

DRUGS (12)
  1. TENORETIC [Concomitant]
  2. LEVOTHYROXINE SODIUM [Concomitant]
  3. ACETYLSALICYLIC ACID [Concomitant]
  4. AMARYL [Concomitant]
  5. IMATINIB MESYLATE [Suspect]
     Indication: POLYCYTHAEMIA VERA
     Dosage: 400 MG, 1X/DAY
     Route: 048
     Dates: start: 20080101
  6. NPH INSULIN [Concomitant]
  7. PINAVERIUM [Concomitant]
     Dosage: UNK
  8. DEPAKOTE [Concomitant]
  9. DIOVAN [Concomitant]
  10. PANTOPRAZOLE [Suspect]
     Dosage: 20 MG, UNK
     Route: 048
  11. DIGESAN [Concomitant]
  12. CLONAZEPAM [Concomitant]

REACTIONS (6)
  - NAUSEA [None]
  - ABDOMINAL PAIN [None]
  - VOMITING [None]
  - GASTROINTESTINAL DISORDER [None]
  - DIARRHOEA [None]
  - DIARRHOEA HAEMORRHAGIC [None]
